FAERS Safety Report 9122773 (Version 2)
Quarter: 2013Q1

REPORT INFORMATION
  Report Type: Spontaneous
  Country: US (occurrence: US)
  Receive Date: 20130115
  Receipt Date: 20130308
  Transmission Date: 20140127
  Serious: Yes (Hospitalization)
  Sender: FDA-Public Use
  Company Number: US-BAYER-2013-005089

PATIENT
  Age: 46 Year
  Sex: Female

DRUGS (8)
  1. MIRENA [Suspect]
     Indication: METRORRHAGIA
     Dosage: 20 MCG/24HR, CONT
     Route: 015
     Dates: start: 20070808
  2. FISH OIL [Concomitant]
     Dosage: 120 MG, ONCE
  3. MULTI - WOMAN^S PETITES [Concomitant]
     Dosage: 2 DF, ONCE
  4. MAGNESIUM [Concomitant]
     Dosage: 250 MG, ONCE
  5. CALCIUM [Concomitant]
     Dosage: 500 MG, ONCE
  6. VITAMIN D [Concomitant]
     Dosage: 500 MG, TWICE
  7. B12 [Concomitant]
     Dosage: 300 ?G, ONCE
  8. VITAMIN C [Concomitant]
     Dosage: 100 MG, ONCE

REACTIONS (4)
  - Dehydration [Recovered/Resolved]
  - Device misuse [None]
  - Pallor [Recovered/Resolved]
  - Procedural pain [None]
